FAERS Safety Report 8433602-6 (Version None)
Quarter: 2012Q2

REPORT INFORMATION
  Report Type: 
  Country: None (occurrence: None)
  Receive Date: 20120323
  Receipt Date: 20111221
  Transmission Date: 20120825
  Serious: Yes (Other)
  Sender: FDA-Public Use
  Company Number: 163-21880-11071932

PATIENT
  Age: 65 Year
  Sex: Female
  Weight: 66.6788 kg

DRUGS (4)
  1. REVLIMID [Suspect]
  2. AREDIA [Concomitant]
  3. REVLIMID [Suspect]
     Indication: MULTIPLE MYELOMA
     Dosage: 10 MG, 1 IN 1D, PO; 10 MG, 1 IN 1 D, PO
     Route: 048
     Dates: start: 20110425
  4. REVLIMID [Suspect]
     Indication: MULTIPLE MYELOMA
     Dosage: 10 MG, 1 IN 1D, PO; 10 MG, 1 IN 1 D, PO
     Route: 048
     Dates: start: 20090513, end: 20100809

REACTIONS (6)
  - PANCYTOPENIA [None]
  - DIARRHOEA [None]
  - OEDEMA PERIPHERAL [None]
  - RED BLOOD CELL COUNT DECREASED [None]
  - FULL BLOOD COUNT DECREASED [None]
  - THROMBOCYTOPENIA [None]
